FAERS Safety Report 21151267 (Version 3)
Quarter: 2022Q3

REPORT INFORMATION
  Report Type: Spontaneous
  Country: US (occurrence: US)
  Receive Date: 20220730
  Receipt Date: 20220911
  Transmission Date: 20221027
  Serious: Yes (Other)
  Sender: FDA-Public Use
  Company Number: US-SANOFI-01190173

PATIENT
  Age: 76 Year
  Sex: Female

DRUGS (2)
  1. TOUJEO [Suspect]
     Active Substance: INSULIN GLARGINE
     Indication: Type 2 diabetes mellitus
     Dosage: UNK, QD (BETWEEN 70 AND 72 (UNITS) ONCE A DAY AT NIGHT)
  2. HUMALOG [Concomitant]
     Active Substance: INSULIN LISPRO
     Indication: Type 2 diabetes mellitus

REACTIONS (8)
  - Diabetes mellitus inadequate control [Unknown]
  - Loss of consciousness [Unknown]
  - Hypoacusis [Unknown]
  - Skin injury [Unknown]
  - Blood glucose decreased [Unknown]
  - Accidental overdose [Unknown]
  - Device malfunction [Unknown]
  - Blood glucose fluctuation [Unknown]

NARRATIVE: CASE EVENT DATE: 20220712
